FAERS Safety Report 8093929-7 (Version None)
Quarter: 2012Q1

REPORT INFORMATION
  Report Type: 
  Country: None (occurrence: None)
  Receive Date: 20120130
  Receipt Date: 20120116
  Transmission Date: 20120608
  Serious: Yes (Hospitalization, Other)
  Sender: FDA-Public Use
  Company Number: US-ELI_LILLY_AND_COMPANY-US201112006751

PATIENT
  Age: 65 Year
  Sex: Male

DRUGS (7)
  1. CYMBALTA [Suspect]
     Dosage: 60 MG, BID
     Dates: start: 20110611, end: 20111027
  2. CYMBALTA [Suspect]
     Dosage: 30 MG, QD
     Dates: start: 20111028, end: 20111101
  3. CYMBALTA [Suspect]
     Dosage: 60 MG, QD
     Dates: start: 20120106
  4. CYMBALTA [Suspect]
     Dosage: 30 MG, QD
     Dates: start: 20111221, end: 20120105
  5. CYMBALTA [Suspect]
     Dosage: 120 MG, QD
  6. CYMBALTA [Suspect]
     Indication: DEPRESSION
     Dosage: 60 MG, QD
     Dates: start: 20040101
  7. CYMBALTA [Suspect]
     Dosage: 60 MG, QD

REACTIONS (20)
  - HYPERTROPHIC CARDIOMYOPATHY [None]
  - INFLAMMATION [None]
  - DEFAECATION URGENCY [None]
  - CONSTIPATION [None]
  - DRUG DEPENDENCE [None]
  - DRUG INEFFECTIVE [None]
  - DRUG WITHDRAWAL SYNDROME [None]
  - PRESYNCOPE [None]
  - ABDOMINAL DISTENSION [None]
  - BRADYCARDIA [None]
  - ILLUSION [None]
  - DYSPHEMIA [None]
  - ANXIETY [None]
  - PRODUCT COUNTERFEIT [None]
  - DIARRHOEA [None]
  - CONSCIOUSNESS FLUCTUATING [None]
  - IRRITABLE BOWEL SYNDROME [None]
  - DEPRESSION [None]
  - SEDATION [None]
  - ASTHENIA [None]
